FAERS Safety Report 7804351-X (Version None)
Quarter: 2011Q4

REPORT INFORMATION
  Report Type: 
  Country: None (occurrence: None)
  Receive Date: 20111010
  Receipt Date: 20110926
  Transmission Date: 20120403
  Serious: Yes (Hospitalization, Other)
  Sender: FDA-Public Use
  Company Number: CO-BAYER-2010-007615

PATIENT
  Age: 63 Year
  Sex: Male
  Weight: 60 kg

DRUGS (12)
  1. ACETAMINOPHEN [Concomitant]
  2. RIVAROXABAN [Interacting]
     Indication: ACUTE CORONARY SYNDROME
     Dosage: 5 MG, BID
     Route: 048
     Dates: start: 20100923, end: 20101213
  3. VALSARTAN [Concomitant]
  4. ETIFOXINE [Concomitant]
  5. SODIUM BICARBONATE [Concomitant]
  6. RIVAROXABAN [Interacting]
     Dosage: 5 MG, BID
     Route: 048
     Dates: start: 20100922, end: 20100922
  7. AMLODIPINE [Concomitant]
  8. IBUPROFEN [Concomitant]
     Dosage: DOSAGE FORM: UNSPECIFIED
  9. AMLODIPINE [Concomitant]
  10. OMEPRAZOLE [Concomitant]
  11. CLOPIDOGREL [Interacting]
     Indication: ACUTE CORONARY SYNDROME
  12. ACETYLSALICYLIC ACID SRT [Suspect]
     Indication: ACUTE CORONARY SYNDROME

REACTIONS (2)
  - BLOOD CREATININE INCREASED [None]
  - ANAEMIA [None]
